FAERS Safety Report 6437812-9 (Version None)
Quarter: 2009Q4

REPORT INFORMATION
  Report Type: 
  Country: None (occurrence: None)
  Receive Date: 20091112
  Receipt Date: 20091012
  Transmission Date: 20100525
  Serious: No
  Sender: FDA-Public Use
  Company Number: US-BAYER-200936055NA

PATIENT
  Age: 67 Year
  Sex: Female

DRUGS (3)
  1. AVELOX [Suspect]
     Indication: DRUG USE FOR UNKNOWN INDICATION
  2. METHADONE [Concomitant]
  3. OXYCONTIN [Concomitant]

REACTIONS (1)
  - PAIN IN EXTREMITY [None]
